FAERS Safety Report 8886944 (Version 1)
Quarter: 2012Q4

REPORT INFORMATION
  Report Type: 
  Country: DE (occurrence: DE)
  Receive Date: 20121105
  Receipt Date: 20121105
  Transmission Date: 20130627
  Serious: Yes (Congenital Anomaly, Other)
  Sender: FDA-Public Use
  Company Number: GXKR2012DE003377

PATIENT

DRUGS (2)
  1. BISOPROLOL [Suspect]
     Dosage: maternal dose: 5mg/day
     Route: 064
  2. FOLIC ACID [Concomitant]
     Dosage: Maternal dose: 0.8 mg/d (also preconceptional)
     Route: 064

REACTIONS (3)
  - Atrial septal defect [Unknown]
  - Small for dates baby [Unknown]
  - Foetal exposure during pregnancy [Unknown]
